FAERS Safety Report 18225516 (Version 1)
Quarter: 2020Q3

REPORT INFORMATION
  Report Type: Spontaneous
  Country: US (occurrence: US)
  Receive Date: 20200903
  Receipt Date: 20200903
  Transmission Date: 20201103
  Serious: Yes (Death, Hospitalization)
  Sender: FDA-Public Use
  Company Number: US-PACIRA-202000341

PATIENT

DRUGS (2)
  1. NORMAL SALINE [Concomitant]
     Active Substance: SODIUM CHLORIDE
     Indication: ANALGESIC THERAPY
     Dosage: SALINE WITH 266 MG OF EXPAREL TO TOTAL VOLUME OF 100 ML
  2. EXPAREL [Suspect]
     Active Substance: BUPIVACAINE
     Indication: ANALGESIC THERAPY
     Dosage: 266 MG (20 ML DILUTED WITH 0.9% NORMAL SALINE TO TOTAL VOLUME OF 100 ML)

REACTIONS (2)
  - Death [Fatal]
  - Off label use [Unknown]
